FAERS Safety Report 8711017 (Version 2)
Quarter: 2012Q4

REPORT INFORMATION
  Report Type: 
  Country: DK (occurrence: DK)
  Receive Date: 20120807
  Receipt Date: 20121029
  Transmission Date: 20130627
  Serious: Yes (Life-Threatening, Hospitalization, Other)
  Sender: FDA-Public Use
  Company Number: DK-US-EMD SERONO, INC.-E2B_7151770

PATIENT
  Age: 36 Year
  Sex: Female
  Weight: 70 kg

DRUGS (2)
  1. REBIF [Suspect]
     Indication: PRODUCT USED FOR UNKNOWN INDICATION
     Dosage: UNK UKN, UNK
  2. GILENYA [Suspect]
     Indication: MULTIPLE SCLEROSIS
     Dosage: 0.5 mg, QD
     Route: 048
     Dates: start: 20120309, end: 20120513

REACTIONS (13)
  - Abdominal abscess [Recovered/Resolved]
  - Appendicitis perforated [Recovering/Resolving]
  - Acute disseminated encephalomyelitis [Recovering/Resolving]
  - Pelvic fluid collection [Recovered/Resolved]
  - Cognitive disorder [Recovering/Resolving]
  - Haemangioma [Unknown]
  - Central nervous system lesion [Unknown]
  - Multiple sclerosis relapse [Recovering/Resolving]
  - Peritonitis [Recovering/Resolving]
  - Sinus polyp [Unknown]
  - Hemiparesis [Recovering/Resolving]
  - Aphasia [Recovering/Resolving]
  - Quadriplegia [Unknown]
